FAERS Safety Report 9306426 (Version 1)
Quarter: 2013Q2

REPORT INFORMATION
  Report Type: Spontaneous
  Country: US (occurrence: US)
  Receive Date: 20130523
  Receipt Date: 20130523
  Transmission Date: 20140414
  Serious: No
  Sender: FDA-Public Use
  Company Number: US-009507513-1305USA010876

PATIENT
  Age: 21 Year
  Sex: 0
  Weight: 68.27 kg

DRUGS (2)
  1. NEXPLANON [Suspect]
     Dosage: 1 STANDARD PACKAGE OF PF APPLY OF 1
     Route: 059
     Dates: start: 20130509, end: 20130509
  2. NEXPLANON [Suspect]
     Dosage: 1 DF, UNK
     Route: 059
     Dates: start: 20130509

REACTIONS (2)
  - Device difficult to use [Unknown]
  - Product quality issue [Unknown]
